FAERS Safety Report 12539124 (Version 2)
Quarter: 2016Q3

REPORT INFORMATION
  Report Type: Spontaneous
  Country: CN (occurrence: CN)
  Receive Date: 20160708
  Receipt Date: 20160819
  Transmission Date: 20161109
  Serious: Yes (Other)
  Sender: FDA-Public Use
  Company Number: CN-PFIZER INC-2016321507

PATIENT
  Age: 63 Year
  Sex: Female

DRUGS (1)
  1. SUTENT [Suspect]
     Active Substance: SUNITINIB MALATE
     Indication: GASTROINTESTINAL STROMAL TUMOUR
     Dosage: UNK

REACTIONS (3)
  - Ascites [Unknown]
  - Asthenia [Unknown]
  - Hypertension [Unknown]
